FAERS Safety Report 25534207 (Version 1)
Quarter: 2025Q3

REPORT INFORMATION
  Report Type: Spontaneous
  Country: EU (occurrence: EU)
  Receive Date: 20250709
  Receipt Date: 20250709
  Transmission Date: 20251020
  Serious: Yes (Hospitalization)
  Sender: AUROBINDO
  Company Number: EU-PROCTER+GAMBLE-PH25008314

PATIENT
  Age: 51 Year
  Sex: Female
  Weight: 65 kg

DRUGS (6)
  1. RISPERIDONE [Suspect]
     Active Substance: RISPERIDONE
     Indication: Product used for unknown indication
     Dosage: 1 DOSAGE FORM, ONCE A DAY(0.5 MG, 1 TABLET, 1 ONLY, 1 TABLET(S) (MIX-UP))
     Route: 048
     Dates: start: 20250612, end: 20250612
  2. VENLAFAXINE [Suspect]
     Active Substance: VENLAFAXINE HYDROCHLORIDE
     Indication: Product used for unknown indication
     Dosage: 1 DOSAGE FORM, ONCE A DAY(150, 1 TABLET, 1 ONLY, 1 TABLET(S) (MIX-UP))
     Route: 048
     Dates: start: 20250612, end: 20250612
  3. VENLAFAXINE [Suspect]
     Active Substance: VENLAFAXINE HYDROCHLORIDE
     Dosage: 1 DOSAGE FORM, ONCE A DAY(37.5 MG, 1 TABLET, 1 ONLY, 1 TABLET(S) (MIX-UP))
     Route: 048
     Dates: start: 20250612, end: 20250612
  4. ARIPIPRAZOLE [Suspect]
     Active Substance: ARIPIPRAZOLE
     Indication: Product used for unknown indication
     Dosage: 1 DOSAGE FORM, ONCE A DAY(10, 1 TABLET, 1 ONLY, 1 TABLET(S) (MIX-UP))
     Route: 048
     Dates: start: 20250612, end: 20250612
  5. FOLIC ACID [Suspect]
     Active Substance: FOLIC ACID
     Indication: Product used for unknown indication
     Dosage: 1 DOSAGE FORM, ONCE A DAY(0.4, 1 TABLET, 1 ONLY, 1 TABLET(S) (MIX-UP))
     Route: 048
     Dates: start: 20250612, end: 20250612
  6. CHOLECALCIFEROL [Suspect]
     Active Substance: CHOLECALCIFEROL
     Indication: Product used for unknown indication
     Dosage: 1 DOSAGE FORM, ONCE A DAY(1 TABLET, 1 ONLY, 1 TABLET(S) (MIX-UP))
     Route: 048
     Dates: start: 20250612, end: 20250612

REACTIONS (5)
  - Blood pressure systolic increased [Unknown]
  - Heart rate decreased [Unknown]
  - Somnolence [Unknown]
  - Vomiting [Unknown]
  - Wrong product administered [Unknown]

NARRATIVE: CASE EVENT DATE: 20250612
